FAERS Safety Report 5890989-6 (Version None)
Quarter: 2008Q3

REPORT INFORMATION
  Report Type: 
  Country: None (occurrence: None)
  Receive Date: 20080922
  Receipt Date: 20080912
  Transmission Date: 20090109
  Serious: Yes (Other)
  Sender: FDA-Public Use
  Company Number: B0533258A

PATIENT
  Age: 39 Year
  Sex: Male

DRUGS (9)
  1. PAXIL [Suspect]
     Indication: DEPRESSION
     Dosage: 20MG PER DAY
     Route: 048
  2. SAWATENE [Suspect]
     Indication: DRUG USE FOR UNKNOWN INDICATION
     Route: 048
  3. DICLOFENAC [Concomitant]
     Route: 048
  4. TETRAMIDE [Concomitant]
     Dosage: 10MG PER DAY
     Route: 048
  5. LORAZEPAM [Concomitant]
     Dosage: 4.5MG PER DAY
     Route: 048
  6. EURODIN [Concomitant]
     Dosage: 4MG PER DAY
     Route: 048
  7. LENDORMIN [Concomitant]
     Route: 048
  8. ISOMYTAL [Concomitant]
     Route: 048
  9. AKINETON [Concomitant]
     Route: 065

REACTIONS (1)
  - ALTERED STATE OF CONSCIOUSNESS [None]
